FAERS Safety Report 6496197-2 (Version None)
Quarter: 2009Q4

REPORT INFORMATION
  Report Type: 
  Country: None (occurrence: None)
  Receive Date: 20091214
  Receipt Date: 20091021
  Transmission Date: 20100525
  Serious: No
  Sender: FDA-Public Use
  Company Number: US-BRISTOL-MYERS SQUIBB COMPANY-14825582

PATIENT
  Sex: Female

DRUGS (2)
  1. ABILIFY [Suspect]
  2. SEROQUEL [Suspect]
     Dosage: INTIAL DOSE 500MG DECREASED TO 400 AND 300MG; AGAIN INCREASED TO 500MG

REACTIONS (1)
  - PSYCHIATRIC DECOMPENSATION [None]
